FAERS Safety Report 8394219-5 (Version None)
Quarter: 2012Q2

REPORT INFORMATION
  Report Type: 
  Country: None (occurrence: None)
  Receive Date: 20120530
  Receipt Date: 20120523
  Transmission Date: 20120825
  Serious: Yes (Other)
  Sender: FDA-Public Use
  Company Number: PT-COVIDIEN/TYCO HEALTHCARE/MALLINCKRODT-T201201116

PATIENT
  Age: 35 Year
  Sex: Male

DRUGS (6)
  1. EXALGO [Suspect]
     Dosage: 32 MG, QD
  2. MST                                /00036302/ [Concomitant]
  3. CETUXIMAB [Concomitant]
     Dosage: UNK
     Dates: start: 20110201
  4. EXALGO [Suspect]
     Indication: CANCER PAIN
     Dosage: 24 MG
     Route: 048
     Dates: start: 20111201
  5. MORPHINE SULFATE [Concomitant]
     Indication: PAIN
     Dosage: 20, ONE TABLET PRN, WITH AN INTERVAL AT LEAST OF 4 HOURS BETWEEN EACH TABLET.
     Dates: start: 20111201
  6. FOLFIRI [Concomitant]
     Dosage: UNK
     Dates: start: 20110201

REACTIONS (3)
  - HEPATOTOXICITY [None]
  - JAUNDICE [None]
  - DRUG INEFFECTIVE [None]
